FAERS Safety Report 4859233-2 (Version None)
Quarter: 2005Q4

REPORT INFORMATION
  Report Type: 
  Country: None (occurrence: None)
  Receive Date: 20051219
  Receipt Date: 20051208
  Transmission Date: 20060501
  Serious: Yes (Other)
  Sender: FDA-Public Use
  Company Number: FR-AMGEN-UK160979

PATIENT
  Age: 14 Year
  Sex: Female

DRUGS (3)
  1. ARANESP [Suspect]
     Indication: RENAL FAILURE CHRONIC
     Route: 065
     Dates: start: 20050701
  2. FOLATE SODIUM [Concomitant]
     Route: 065
  3. VITAMIN B-12 [Concomitant]
     Route: 065

REACTIONS (1)
  - REFRACTORY ANAEMIA [None]
